FAERS Safety Report 6523821-8 (Version None)
Quarter: 2009Q4

REPORT INFORMATION
  Report Type: 
  Country: None (occurrence: None)
  Receive Date: 20091231
  Receipt Date: 20091221
  Transmission Date: 20100525
  Serious: Yes (Hospitalization)
  Sender: FDA-Public Use
  Company Number: US-ROCHE-676907

PATIENT
  Sex: Female
  Weight: 73.9 kg

DRUGS (7)
  1. BEVACIZUMAB [Suspect]
     Indication: MALIGNANT ASCITES
     Route: 065
     Dates: start: 20090514, end: 20090514
  2. BEVACIZUMAB [Suspect]
     Route: 065
     Dates: start: 20090528, end: 20090528
  3. BEVACIZUMAB [Suspect]
     Route: 065
     Dates: start: 20090611, end: 20090611
  4. BEVACIZUMAB [Suspect]
     Route: 065
     Dates: start: 20090625
  5. GEMCITABINE [Suspect]
     Indication: DRUG USE FOR UNKNOWN INDICATION
     Dosage: 1500 MG/M2/MIN
     Route: 065
     Dates: start: 20090514, end: 20090514
  6. GEMCITABINE [Suspect]
     Dosage: DOSE: 1500 MG/M2/MIN
     Route: 065
     Dates: start: 20090528, end: 20090528
  7. GEMCITABINE [Suspect]
     Dosage: DOSE: 1500 MG/M2/MIN
     Route: 065
     Dates: start: 20091106

REACTIONS (2)
  - PANCREATIC OPERATION [None]
  - PANCREATICODUODENECTOMY [None]
